FAERS Safety Report 4404463-7 (Version None)
Quarter: 2004Q3

REPORT INFORMATION
  Report Type: 
  Country: None (occurrence: None)
  Receive Date: 20040721
  Receipt Date: 20040721
  Transmission Date: 20050211
  Serious: Yes (Hospitalization, Other)
  Sender: FDA-Public Use
  Company Number: None

PATIENT
  Age: 53 Year
  Sex: Female
  Weight: 79 kg

DRUGS (8)
  1. ISOVUE-300 [Suspect]
     Indication: SCAN WITH CONTRAST
     Dosage: 130 ML, IV 3 ML/SEC
     Route: 042
     Dates: start: 20040524, end: 20040524
  2. SINGULAIR [Concomitant]
  3. ALBUTEROL [Concomitant]
  4. CLARINEX [Concomitant]
  5. HORMONE PATCH [Concomitant]
  6. BENADRYL [Concomitant]
  7. PREDNISONE [Concomitant]
  8. RANITIDINE [Concomitant]

REACTIONS (8)
  - BRONCHOSPASM [None]
  - CHEST DISCOMFORT [None]
  - DIZZINESS [None]
  - PRURITUS [None]
  - RESPIRATORY DISTRESS [None]
  - THROAT TIGHTNESS [None]
  - URTICARIA [None]
  - WHEEZING [None]
